FAERS Safety Report 6063967-4 (Version None)
Quarter: 2009Q1

REPORT INFORMATION
  Report Type: 
  Country: None (occurrence: None)
  Receive Date: 20090204
  Receipt Date: 20090130
  Transmission Date: 20090719
  Serious: Yes (Death)
  Sender: FDA-Public Use
  Company Number: PHBS2007JP17890

PATIENT
  Age: 39 Year
  Sex: Female

DRUGS (16)
  1. TEGRETOL [Suspect]
     Indication: TEMPORAL LOBE EPILEPSY
     Dosage: 900 MG/DAY
     Route: 048
  2. TEGRETOL [Suspect]
     Dosage: 100 MG/DAY
     Route: 048
  3. TEGRETOL [Suspect]
     Dosage: 500MG
     Dates: start: 20040127
  4. PHENYTOIN [Concomitant]
     Indication: TEMPORAL LOBE EPILEPSY
     Dosage: 300 MG/D
     Route: 048
  5. PHENYTOIN [Concomitant]
     Dosage: 250MG/DAY
  6. PHENYTOIN [Concomitant]
     Dosage: 260MG
  7. PHENYTOIN [Concomitant]
     Dosage: 280MG
  8. PHENOBARBITAL [Concomitant]
     Indication: TEMPORAL LOBE EPILEPSY
     Dosage: 60 MG/D
     Route: 048
     Dates: start: 20040127
  9. CLOBAZAM [Concomitant]
     Indication: TEMPORAL LOBE EPILEPSY
     Dosage: 40 MG/D
     Route: 048
  10. CLOBAZAM [Concomitant]
     Dosage: 30 MG/D
     Route: 065
     Dates: start: 20040127
  11. CLOBAZAM [Concomitant]
     Dosage: 20MG
  12. ANTINEOPLASTIC AGENTS [Concomitant]
     Route: 065
  13. MORPHINE [Concomitant]
     Dosage: UNK
     Route: 048
     Dates: start: 20070607
  14. LUTEINIZING HORMONE-RELEASING HORMONE [Concomitant]
     Dosage: UNK
     Dates: start: 20070607
  15. ASPIRIN [Concomitant]
     Dosage: UNK
     Dates: start: 20070607
  16. ENDOXAN [Concomitant]
     Dosage: UNK
     Dates: start: 20070201

REACTIONS (6)
  - BREAST CANCER [None]
  - CONVULSION [None]
  - GENERAL PHYSICAL HEALTH DETERIORATION [None]
  - METASTASIS [None]
  - SURGERY [None]
  - TREATMENT NONCOMPLIANCE [None]
